FAERS Safety Report 21332020 (Version 1)
Quarter: 2022Q3

REPORT INFORMATION
  Report Type: Spontaneous
  Country: US (occurrence: US)
  Receive Date: 20220914
  Receipt Date: 20220914
  Transmission Date: 20221027
  Serious: Yes (Other)
  Sender: FDA-Public Use
  Company Number: US-MYLANLABS-2022M1092573

PATIENT
  Age: 63 Year
  Sex: Male
  Weight: 65.77 kg

DRUGS (1)
  1. SEMGLEE (INSULIN GLARGINE-YFGN) [Suspect]
     Active Substance: INSULIN GLARGINE-YFGN
     Indication: Type 2 diabetes mellitus
     Dosage: UNK, QD, (10ML -20ML DEPENDING ON HIS BLOOD GLUCOSE READING)
     Route: 065
     Dates: start: 202203

REACTIONS (6)
  - Lipodystrophy acquired [Unknown]
  - Lipohypertrophy [Unknown]
  - Weight decreased [Unknown]
  - Blood glucose increased [Not Recovered/Not Resolved]
  - Drug ineffective [Unknown]
  - Device issue [Unknown]

NARRATIVE: CASE EVENT DATE: 20220301
